FAERS Safety Report 4368812-0 (Version None)
Quarter: 2004Q2

REPORT INFORMATION
  Report Type: 
  Country: None (occurrence: None)
  Receive Date: 20040528
  Receipt Date: 20040518
  Transmission Date: 20050107
  Serious: Yes (Hospitalization)
  Sender: FDA-Public Use
  Company Number: 001-0981-M0006573

PATIENT
  Age: 73 Year
  Sex: Female
  Weight: 78.4723 kg

DRUGS (5)
  1. LIPITOR [Suspect]
     Indication: BLOOD CHOLESTEROL INCREASED
     Dosage: 10 MG (1 IN 1 D), ORAL
     Route: 048
     Dates: start: 20000608
  2. DILTIAZEM HYDROCHLORIDE [Concomitant]
  3. ACETYLSALICYLIC ACID SRT [Concomitant]
  4. HYZAAR [Concomitant]
  5. DIGOXIN [Concomitant]

REACTIONS (5)
  - BLOOD CHOLESTEROL INCREASED [None]
  - HEART RATE IRREGULAR [None]
  - MUSCULAR WEAKNESS [None]
  - MYALGIA [None]
  - SEPSIS [None]
